FAERS Safety Report 21298523 (Version 1)
Quarter: 2022Q3

REPORT INFORMATION
  Report Type: Spontaneous
  Country: None (occurrence: US)
  Receive Date: 20220906
  Receipt Date: 20220906
  Transmission Date: 20221026
  Serious: No
  Sender: FDA-Public Use
  Company Number: US-Breckenridge Pharmaceutical, Inc.-2132581

PATIENT
  Age: 72 Year
  Sex: Female
  Weight: 41.364 kg

DRUGS (4)
  1. EXEMESTANE [Suspect]
     Active Substance: EXEMESTANE
     Indication: Breast cancer
     Route: 048
  2. LOSARTAN [Concomitant]
     Active Substance: LOSARTAN
  3. FAMOTIDINE [Concomitant]
     Active Substance: FAMOTIDINE
  4. OTC vitamins [Concomitant]

REACTIONS (6)
  - Limb discomfort [Recovering/Resolving]
  - Movement disorder [Recovering/Resolving]
  - Myalgia [Recovered/Resolved]
  - Paraesthesia [Recovering/Resolving]
  - Somnolence [Unknown]
  - Varicose vein [Unknown]
